FAERS Safety Report 24449693 (Version 1)
Quarter: 2024Q4

REPORT INFORMATION
  Report Type: Report from Study
  Country: ZA (occurrence: ZA)
  Receive Date: 20241017
  Receipt Date: 20241017
  Transmission Date: 20250115
  Serious: Yes (Other)
  Sender: NOVARTIS
  Company Number: ZA-002147023-NVSC2024ZA201496

PATIENT
  Age: 55 Year
  Sex: Male

DRUGS (1)
  1. INCLISIRAN [Suspect]
     Active Substance: INCLISIRAN
     Indication: Primary hypercholesterolaemia
     Dosage: 284 MG, OTHER (MONTH 0, MONTH 3, AND MONTH 6 AND THEREAFTER EVERY 6 MONTHS)
     Route: 058

REACTIONS (1)
  - Product prescribing error [Unknown]
